FAERS Safety Report 9250842 (Version 5)
Quarter: 2013Q3

REPORT INFORMATION
  Report Type: Spontaneous
  Country: IE (occurrence: IE)
  Receive Date: 20130424
  Receipt Date: 20130703
  Transmission Date: 20140515
  Serious: Yes (Hospitalization, Other)
  Sender: FDA-Public Use
  Company Number: PHFR2013IE002145

PATIENT
  Age: 27 Year
  Sex: Male
  Weight: 75.4 kg

DRUGS (5)
  1. CLOZARIL [Suspect]
     Indication: SCHIZOPHRENIA
     Dosage: 200 MG /DAY
     Route: 048
     Dates: start: 20130320
  2. CLOZARIL [Suspect]
     Dosage: 250 MG, QD
  3. MIRTAZAPINE [Concomitant]
     Indication: DEPRESSION
     Dosage: 45 MG DAILY
     Route: 048
     Dates: start: 20130124
  4. VENLAFEX XL [Concomitant]
     Indication: DEPRESSION
     Dosage: 300 MG DAILY
     Route: 048
     Dates: start: 20130301
  5. RISPERIDONE [Concomitant]
     Dosage: 3 MG DAILY
     Route: 048
     Dates: start: 20130124

REACTIONS (10)
  - Influenza like illness [Recovered/Resolved]
  - C-reactive protein increased [Recovering/Resolving]
  - Myocarditis [Recovering/Resolving]
  - Troponin increased [Recovered/Resolved]
  - Chest pain [Recovering/Resolving]
  - Pyrexia [Recovered/Resolved]
  - Tachycardia [Recovered/Resolved]
  - Chills [Recovered/Resolved]
  - Viral myocarditis [Unknown]
  - Eosinophil count increased [Recovering/Resolving]
